FAERS Safety Report 13175733 (Version 2)
Quarter: 2017Q1

REPORT INFORMATION
  Report Type: Report from Study
  Country: US (occurrence: US)
  Receive Date: 20170201
  Receipt Date: 20170215
  Transmission Date: 20170428
  Serious: Yes (Hospitalization, Other)
  Sender: FDA-Public Use
  Company Number: US-GILEAD-2017-0252258

PATIENT
  Age: 39 Year
  Sex: Female
  Weight: 87.75 kg

DRUGS (1)
  1. LEDIPASVIR/SOFOSBUVIR [Suspect]
     Active Substance: LEDIPASVIR\SOFOSBUVIR
     Indication: CHRONIC HEPATITIS C
     Dosage: 1 DF, UNK
     Route: 048
     Dates: start: 20161219

REACTIONS (12)
  - Pyrexia [Not Recovered/Not Resolved]
  - Influenza like illness [Recovered/Resolved]
  - Kidney infection [Unknown]
  - Tremor [Unknown]
  - Escherichia sepsis [Unknown]
  - Cold sweat [Unknown]
  - Headache [Unknown]
  - Drug dose omission [Recovered/Resolved]
  - Renal abscess [Unknown]
  - Vomiting [Unknown]
  - Fatigue [Unknown]
  - Insomnia [Unknown]

NARRATIVE: CASE EVENT DATE: 20170101
